FAERS Safety Report 11972954 (Version 2)
Quarter: 2016Q1

REPORT INFORMATION
  Report Type: Spontaneous
  Country: FR (occurrence: FR)
  Receive Date: 20160128
  Receipt Date: 20160302
  Transmission Date: 20160526
  Serious: Yes (Other)
  Sender: FDA-Public Use
  Company Number: FR-ASTRAZENECA-2016SE08093

PATIENT
  Age: 25291 Day
  Sex: Male

DRUGS (12)
  1. LYRICA [Concomitant]
     Active Substance: PREGABALIN
  2. KARDEGIC [Concomitant]
     Active Substance: ASPIRIN LYSINE
  3. PERINDOPRIL [Concomitant]
     Active Substance: PERINDOPRIL
  4. MOPRAL [Concomitant]
     Active Substance: OMEPRAZOLE SODIUM
  5. TADENAN [Concomitant]
     Active Substance: PYGEUM
  6. PREZISTA [Concomitant]
     Active Substance: DARUNAVIR ETHANOLATE
  7. TRIFLUCAN [Concomitant]
     Active Substance: FLUCONAZOLE
  8. LEXOMIL [Concomitant]
     Active Substance: BROMAZEPAM
  9. OMEXEL [Concomitant]
     Active Substance: TAMSULOSIN HYDROCHLORIDE
  10. HARVONI [Suspect]
     Active Substance: LEDIPASVIR\SOFOSBUVIR
     Indication: CHRONIC HEPATITIS C
     Route: 048
     Dates: start: 20150122, end: 20160106
  11. NORVIR [Concomitant]
     Active Substance: RITONAVIR
  12. CRESTOR [Suspect]
     Active Substance: ROSUVASTATIN CALCIUM
     Indication: PROPHYLAXIS
     Route: 048
     Dates: start: 201508, end: 20160106

REACTIONS (1)
  - Tendonitis [Recovering/Resolving]

NARRATIVE: CASE EVENT DATE: 20150130
